FAERS Safety Report 21618571 (Version 1)
Quarter: 2022Q4

REPORT INFORMATION
  Report Type: Spontaneous
  Country: CN (occurrence: CN)
  Receive Date: 20221119
  Receipt Date: 20221119
  Transmission Date: 20230113
  Serious: Yes (Other)
  Sender: FDA-Public Use
  Company Number: None

PATIENT
  Age: 48 Year
  Sex: Female
  Weight: 50 kg

DRUGS (6)
  1. CYCLOPHOSPHAMIDE [Suspect]
     Active Substance: CYCLOPHOSPHAMIDE
     Indication: Targeted cancer therapy
     Dosage: 0.88 G, QD, DILUTED WITH 100 ML 0.9% SODIUM CHLORIDE
     Route: 041
     Dates: start: 20221014, end: 20221014
  2. CYCLOPHOSPHAMIDE [Suspect]
     Active Substance: CYCLOPHOSPHAMIDE
     Indication: Neoplasm malignant
  3. SODIUM CHLORIDE [Suspect]
     Active Substance: SODIUM CHLORIDE
     Indication: Medication dilution
     Dosage: 100 ML, QD, USED TO DILUTE 0.88 G CYCLOPHOSPHAMIDE
     Route: 041
     Dates: start: 20221014, end: 20221014
  4. SODIUM CHLORIDE [Suspect]
     Active Substance: SODIUM CHLORIDE
     Dosage: 250 ML, QD, USED TO DILUTE 110 MG DOCETAXEL
     Route: 041
     Dates: start: 20221014, end: 20221014
  5. DOCETAXEL [Suspect]
     Active Substance: DOCETAXEL
     Indication: Targeted cancer therapy
     Dosage: 110 MG, QD, DILUTED WITH 250 ML 0.9% SODIUM CHLORIDE
     Route: 041
     Dates: start: 20221014, end: 20221014
  6. DOCETAXEL [Suspect]
     Active Substance: DOCETAXEL
     Indication: Neoplasm malignant

REACTIONS (2)
  - White blood cell count decreased [Recovering/Resolving]
  - Neutrophil count decreased [Recovering/Resolving]

NARRATIVE: CASE EVENT DATE: 20221104
